FAERS Safety Report 10504264 (Version 5)
Quarter: 2015Q1

REPORT INFORMATION
  Report Type: Spontaneous
  Country: US (occurrence: US)
  Receive Date: 20141008
  Receipt Date: 20150226
  Transmission Date: 20150720
  Serious: Yes (Hospitalization, Other)
  Sender: FDA-Public Use
  Company Number: US-AMGEN-USASP2014076559

PATIENT
  Age: 30 Year
  Sex: Female
  Weight: 56.69 kg

DRUGS (4)
  1. ENBREL [Suspect]
     Active Substance: ETANERCEPT
     Indication: PSORIASIS
     Dosage: 50 MG, Q2MO
     Route: 065
     Dates: start: 20090101
  2. ENBREL [Suspect]
     Active Substance: ETANERCEPT
     Indication: PSORIATIC ARTHROPATHY
  3. NOVOLOG [Concomitant]
     Active Substance: INSULIN ASPART
     Dosage: ALL DAY SLIDING SCALE (SLIDING SCALE IN INSULIN PUMP)
     Dates: start: 20050201
  4. OXYCODONE [Concomitant]
     Active Substance: OXYCODONE
     Dosage: 5 MG, QD (PER DAY)
     Route: 048
     Dates: start: 20141201

REACTIONS (11)
  - Psoriasis [Not Recovered/Not Resolved]
  - Lactose intolerance [Recovered/Resolved]
  - Injection site pain [Not Recovered/Not Resolved]
  - Type 1 diabetes mellitus [Unknown]
  - Blindness [Unknown]
  - Hypoaesthesia [Unknown]
  - Drug administration error [Not Recovered/Not Resolved]
  - Abdominal pain [Recovered/Resolved]
  - Incorrect dose administered [Not Recovered/Not Resolved]
  - Prolonged labour [Recovered/Resolved]
  - Migraine [Recovered/Resolved]

NARRATIVE: CASE EVENT DATE: 20140625
